FAERS Safety Report 5710065-2 (Version None)
Quarter: 2008Q2

REPORT INFORMATION
  Report Type: 
  Country: None (occurrence: None)
  Receive Date: 20080418
  Receipt Date: 20070911
  Transmission Date: 20081010
  Serious: No
  Sender: FDA-Public Use
  Company Number: US-ASTRAZENECA-2007UW21423

PATIENT
  Age: 72 Year
  Sex: Female
  Weight: 83.9 kg

DRUGS (3)
  1. TOPROL-XL [Suspect]
     Indication: ISCHAEMIC HEART DISEASE PROPHYLAXIS
     Route: 048
  2. DIOVAN [Concomitant]
  3. SYNTHROID [Concomitant]

REACTIONS (1)
  - PSORIASIS [None]
